FAERS Safety Report 8778236 (Version 2)
Quarter: 2012Q4

REPORT INFORMATION
  Report Type: 
  Country: US (occurrence: US)
  Receive Date: 20120912
  Receipt Date: 20120925
  Transmission Date: 20130627
  Serious: Yes (Other)
  Sender: FDA-Public Use
  Company Number: US-BAYER-2012-094966

PATIENT
  Sex: Female

DRUGS (4)
  1. YAZ [Suspect]
  2. YASMIN [Suspect]
     Indication: CONTRACEPTION
  3. SEASONIQUE [Suspect]
  4. ORTHO EVRA [Suspect]
     Indication: CONTRACEPTION

REACTIONS (6)
  - Thrombosis [None]
  - Acne [None]
  - Weight increased [None]
  - Menorrhagia [None]
  - Menstruation irregular [None]
  - Dysmenorrhoea [None]
